FAERS Safety Report 5871248-4 (Version None)
Quarter: 2008Q3

REPORT INFORMATION
  Report Type: 
  Country: None (occurrence: None)
  Receive Date: 20080903
  Receipt Date: 20080903
  Transmission Date: 20090109
  Serious: Yes (Other)
  Sender: FDA-Public Use
  Company Number: None

PATIENT
  Sex: Female
  Weight: 77.1115 kg

DRUGS (1)
  1. PROPOXYPHENE HCL AND ACETAMINOPHEN [Suspect]
     Indication: ARTHRALGIA
     Dosage: 100/650 MG ONE BID
     Dates: start: 20070201, end: 20070701

REACTIONS (2)
  - RASH GENERALISED [None]
  - RASH PRURITIC [None]
